FAERS Safety Report 8383320-8 (Version None)
Quarter: 2012Q2

REPORT INFORMATION
  Report Type: 
  Country: None (occurrence: None)
  Receive Date: 20120524
  Receipt Date: 20120522
  Transmission Date: 20120825
  Serious: Yes (Other)
  Sender: FDA-Public Use
  Company Number: JP-PFIZER INC-2012118386

PATIENT
  Age: 41 Year
  Sex: Male

DRUGS (2)
  1. VARENICLINE TARTRATE [Suspect]
     Indication: SMOKING CESSATION THERAPY
     Dosage: 0.5 MG, 1X/DAY
     Route: 048
     Dates: start: 20120208, end: 20120210
  2. VARENICLINE TARTRATE [Suspect]
     Dosage: 1 MG, 1X/DAY
     Route: 048
     Dates: start: 20120211, end: 20120312

REACTIONS (5)
  - HEADACHE [None]
  - ABDOMINAL DISTENSION [None]
  - EPISTAXIS [None]
  - BLOOD PRESSURE INCREASED [None]
  - NAUSEA [None]
